FAERS Safety Report 19739801 (Version 1)
Quarter: 2021Q3

REPORT INFORMATION
  Report Type: Spontaneous
  Country: US (occurrence: US)
  Receive Date: 20210823
  Receipt Date: 20210823
  Transmission Date: 20211014
  Serious: No
  Sender: FDA-Public Use
  Company Number: US-ASTRAZENECA-2021A650774

PATIENT
  Age: 24077 Day
  Sex: Male
  Weight: 65.8 kg

DRUGS (5)
  1. FASENRA [Concomitant]
     Active Substance: BENRALIZUMAB
     Dosage: DOSE UNKNOWN UNKNOWN
  2. THEOPHYLLINE [Concomitant]
     Active Substance: THEOPHYLLINE ANHYDROUS
     Dosage: DOSE UNKNOWN UNKNOWN
  3. SPIRIVA [Concomitant]
     Active Substance: TIOTROPIUM BROMIDE MONOHYDRATE
     Dosage: DOSE UNKNOWN UNKNOWN
  4. SYMBICORT [Suspect]
     Active Substance: BUDESONIDE\FORMOTEROL FUMARATE DIHYDRATE
     Indication: CHRONIC OBSTRUCTIVE PULMONARY DISEASE
     Dosage: DOSE UNKNOWN UNKNOWN
     Route: 055
  5. VITAMINS [Concomitant]
     Active Substance: VITAMINS
     Dosage: DOSE UNKNOWN UNKNOWN

REACTIONS (3)
  - Taste disorder [Unknown]
  - Device defective [Unknown]
  - Extra dose administered [Unknown]

NARRATIVE: CASE EVENT DATE: 20210727
